FAERS Safety Report 8960131 (Version 1)
Quarter: 2012Q4

REPORT INFORMATION
  Report Type: 
  Country: US (occurrence: US)
  Receive Date: 20121212
  Receipt Date: 20121212
  Transmission Date: 20130627
  Serious: No
  Sender: FDA-Public Use
  Company Number: US-MYLANLABS-2012S1020564

PATIENT
  Age: 68 Year
  Sex: Male

DRUGS (9)
  1. CLOPIDOGREL TABLETS USP [Suspect]
     Indication: CORONARY ARTERY DISEASE
     Route: 048
     Dates: start: 20120818
  2. CLOPIDOGREL TABLETS USP [Suspect]
     Indication: STENT PLACEMENT
     Route: 048
     Dates: start: 20120818
  3. ASPIRIN [Concomitant]
     Route: 048
  4. DIOVAN [Concomitant]
  5. OMEGA 3 /01334101/ [Concomitant]
  6. PRAVASTATIN [Concomitant]
  7. METOPROLOL [Concomitant]
  8. MULTIVITAMIN [Concomitant]
  9. ZINC [Concomitant]

REACTIONS (2)
  - Drug effect decreased [Not Recovered/Not Resolved]
  - Haemorrhoidal haemorrhage [Not Recovered/Not Resolved]
